FAERS Safety Report 5903729-9 (Version None)
Quarter: 2008Q3

REPORT INFORMATION
  Report Type: 
  Country: None (occurrence: None)
  Receive Date: 20080930
  Receipt Date: 20080908
  Transmission Date: 20090109
  Serious: No
  Sender: FDA-Public Use
  Company Number: US-B.I. PHARMACEUTICALS,INC./RIDGEFIELD-2008-BP-14244BP

PATIENT
  Sex: Male

DRUGS (3)
  1. SPIRIVA [Suspect]
     Indication: CHRONIC OBSTRUCTIVE PULMONARY DISEASE
     Dosage: 18MCG
     Route: 055
     Dates: start: 20080801, end: 20080801
  2. ALTACE [Concomitant]
     Indication: HYPERTENSION
     Dosage: 10MG
  3. ASPIRIN [Concomitant]
     Dosage: LOW DOSE

REACTIONS (1)
  - PROSTATIC SPECIFIC ANTIGEN INCREASED [None]
